FAERS Safety Report 10201186 (Version 1)
Quarter: 2014Q2

REPORT INFORMATION
  Report Type: Spontaneous
  Country: US (occurrence: US)
  Receive Date: 20140528
  Receipt Date: 20140528
  Transmission Date: 20141212
  Serious: No
  Sender: FDA-Public Use
  Company Number: US-PFIZER INC-2014142020

PATIENT
  Age: 60 Year
  Sex: Male

DRUGS (5)
  1. INLYTA [Suspect]
     Indication: RENAL CELL CARCINOMA
     Dosage: UNK, 2X/DAY
     Dates: start: 201311
  2. GLIMEPIRIDE [Concomitant]
     Indication: DIABETES MELLITUS
     Dosage: UNK
  3. DILTIAZEM [Concomitant]
     Indication: HYPERTENSION
     Dosage: UNK
  4. NEXIUM [Concomitant]
     Indication: BARRETT^S OESOPHAGUS
     Dosage: UNK
  5. MORPHINE [Concomitant]
     Dosage: UNK

REACTIONS (1)
  - Memory impairment [Not Recovered/Not Resolved]
